FAERS Safety Report 6511330-1 (Version None)
Quarter: 2009Q4

REPORT INFORMATION
  Report Type: 
  Country: None (occurrence: None)
  Receive Date: 20091222
  Receipt Date: 20090330
  Transmission Date: 20100525
  Serious: Yes (Other)
  Sender: FDA-Public Use
  Company Number: US-ASTRAZENECA-2009UW08038

PATIENT
  Age: 56 Year
  Sex: Female
  Weight: 52.2 kg

DRUGS (4)
  1. CRESTOR [Suspect]
     Indication: BLOOD CHOLESTEROL INCREASED
     Route: 048
     Dates: start: 20090323
  2. BUDETRION XL [Concomitant]
     Indication: DEPRESSION
  3. FISH OIL [Concomitant]
  4. TRIFLEX [Concomitant]

REACTIONS (1)
  - AMNESIA [None]
